FAERS Safety Report 5240699-3 (Version None)
Quarter: 2007Q1

REPORT INFORMATION
  Report Type: 
  Country: None (occurrence: None)
  Receive Date: 20061208
  Receipt Date: 20051219
  Transmission Date: 20070707
  Serious: Yes (Other)
  Sender: FDA-Public Use
  Company Number: 2005UW15151

PATIENT
  Age: 77 Year
  Sex: Female
  Weight: 70.306 kg

DRUGS (13)
  1. CRESTOR [Suspect]
     Indication: BLOOD CHOLESTEROL INCREASED
     Dosage: 10 MG QD PO
     Route: 048
     Dates: end: 20051005
  2. NITROGLYCERIN [Concomitant]
  3. LANOXIN [Concomitant]
  4. LASIX [Concomitant]
  5. ALTACE [Concomitant]
  6. ALLOPURINOL [Concomitant]
  7. TOPROL-XL [Concomitant]
  8. SULINDAC [Concomitant]
  9. POTASSIUM ACETATE [Concomitant]
  10. GLYBURIDE [Concomitant]
  11. NO MATCH [Concomitant]
  12. ZYRTEC [Concomitant]
  13. ASPIRIN [Concomitant]

REACTIONS (5)
  - EYE DISORDER [None]
  - GASTRIC DILATATION [None]
  - OEDEMA PERIPHERAL [None]
  - STOMACH DISCOMFORT [None]
  - SWELLING FACE [None]
